FAERS Safety Report 7037376-5 (Version None)
Quarter: 2010Q4

REPORT INFORMATION
  Report Type: 
  Country: None (occurrence: None)
  Receive Date: 20101011
  Receipt Date: 20100930
  Transmission Date: 20110411
  Serious: Yes (Other)
  Sender: FDA-Public Use
  Company Number: US-BAYER-201021193BCC

PATIENT
  Age: 48 Year
  Sex: Male
  Weight: 109 kg

DRUGS (6)
  1. ALEVE [Suspect]
     Indication: PRODUCT USED FOR UNKNOWN INDICATION
     Route: 048
     Dates: start: 20100905, end: 20100905
  2. ALEVE [Suspect]
     Route: 048
     Dates: start: 20100907, end: 20100910
  3. PRETAZONE [Concomitant]
  4. HYDROCORTISONE 2.5% CREAM [Concomitant]
     Route: 061
  5. EPI-PEN UNKNOWN STRENGTH [Concomitant]
     Dosage: ONE SHOT OF EPI PEN
  6. CHLORPHENIRAMINE MALEATE [Concomitant]

REACTIONS (4)
  - HYPERSENSITIVITY [None]
  - RASH MACULAR [None]
  - SWELLING FACE [None]
  - WHEEZING [None]
